FAERS Safety Report 20622340 (Version 1)
Quarter: 2022Q1

REPORT INFORMATION
  Report Type: Spontaneous
  Country: US (occurrence: US)
  Receive Date: 20220322
  Receipt Date: 20220322
  Transmission Date: 20220423
  Serious: Yes (Other)
  Sender: FDA-Public Use
  Company Number: US-JNJFOC-20220341112

PATIENT
  Sex: Female

DRUGS (3)
  1. INVEGA SUSTENNA [Suspect]
     Active Substance: PALIPERIDONE PALMITATE
     Indication: Schizophrenia
     Route: 030
  2. INVEGA SUSTENNA [Suspect]
     Active Substance: PALIPERIDONE PALMITATE
     Indication: Schizoaffective disorder
     Route: 030
  3. INVEGA SUSTENNA [Suspect]
     Active Substance: PALIPERIDONE PALMITATE
     Indication: Bipolar disorder
     Route: 030
     Dates: start: 201808

REACTIONS (9)
  - Brain injury [Unknown]
  - Mental impairment [Unknown]
  - Anhedonia [Unknown]
  - Loss of libido [Unknown]
  - Amenorrhoea [Unknown]
  - Decreased appetite [Unknown]
  - Insomnia [Unknown]
  - Incorrect dose administered [Unknown]
  - Off label use [Unknown]
